FAERS Safety Report 12810445 (Version 1)
Quarter: 2016Q4

REPORT INFORMATION
  Report Type: Spontaneous
  Country: US (occurrence: US)
  Receive Date: 20161004
  Receipt Date: 20161004
  Transmission Date: 20170207
  Serious: Yes (Other)
  Sender: FDA-Public Use
  Company Number: None

PATIENT
  Age: 71 Year
  Sex: Male
  Weight: 86.85 kg

DRUGS (44)
  1. ATVORSTATIN [Concomitant]
  2. CALCIUM CITRATE [Concomitant]
     Active Substance: CALCIUM CITRATE
  3. SILYMARIN [Concomitant]
     Active Substance: MILK THISTLE
  4. RESVERATROL [Concomitant]
     Active Substance: RESVERATROL
  5. ENZYMES [Concomitant]
  6. PROBIOTIC [Concomitant]
     Active Substance: PROBIOTICS NOS
  7. HAWTHORN [Concomitant]
     Active Substance: CRATAEGUS LAEVIGATA FRUIT
  8. TART CHERRY EXTRACT [Concomitant]
  9. BORON [Concomitant]
     Active Substance: BORON
  10. TERBINIFINE [Concomitant]
  11. LYCOPENE [Concomitant]
     Active Substance: LYCOPENE
  12. MG-CITRATE [Concomitant]
  13. CALCIUM-D-GLUCARATE [Concomitant]
  14. HORSETAIL [Concomitant]
  15. GABA [Concomitant]
     Active Substance: .GAMMA.-AMINOBUTYRIC ACID
  16. V-C [Concomitant]
  17. SOD [Concomitant]
  18. DHEA [Concomitant]
     Active Substance: PRASTERONE
  19. BILBERRY [Concomitant]
     Active Substance: BILBERRY
  20. CLOPIDOGREL [Suspect]
     Active Substance: CLOPIDOGREL BISULFATE
     Indication: STENT PLACEMENT
     Dosage: OTHER DAILY ORAL
     Route: 048
     Dates: start: 20160829
  21. LUTEIN [Concomitant]
     Active Substance: LUTEIN
  22. K-CITRATE [Concomitant]
  23. NITTLE [Concomitant]
  24. BIOTIN [Concomitant]
     Active Substance: BIOTIN
  25. AVENA SATIVA [Concomitant]
     Active Substance: AVENA SATIVA POLLEN
  26. ZMA [Concomitant]
  27. MULTI-VIT [Concomitant]
     Active Substance: VITAMINS
  28. SAW PALEMTTOI [Concomitant]
  29. QUERCETIN [Concomitant]
     Active Substance: QUERCETIN
  30. FISH OIL [Concomitant]
     Active Substance: FISH OIL
  31. DIINDOLMETHANE [Concomitant]
  32. GLUTAMINE [Concomitant]
     Active Substance: GLUTAMINE
  33. TRIBULUS TERRESTRIS [Concomitant]
  34. CISTANCHE [Concomitant]
  35. GLUCOSAMINE/CONDRINE/MSM [Concomitant]
  36. GRAPE SEED EXTRACT [Concomitant]
     Active Substance: GRAPE SEED EXTRACT
  37. TAURINE [Concomitant]
     Active Substance: TAURINE
  38. V-D [Concomitant]
  39. BETA-SITOSTEROL [Concomitant]
  40. V-E COMPLEX WITH TOCOTRIENOLS [Concomitant]
  41. NIACIN. [Concomitant]
     Active Substance: NIACIN
  42. MIXED CAROTENIDS [Concomitant]
  43. CHROMIUM GTF [Concomitant]
  44. EURYCOMA LONGIFIOLIA [Concomitant]

REACTIONS (4)
  - Abasia [None]
  - Impaired driving ability [None]
  - Photosensitivity reaction [None]
  - Pruritus [None]

NARRATIVE: CASE EVENT DATE: 20160922
